FAERS Safety Report 6916235-X (Version None)
Quarter: 2010Q3

REPORT INFORMATION
  Report Type: 
  Country: None (occurrence: None)
  Receive Date: 20100810
  Receipt Date: 20100803
  Transmission Date: 20110219
  Serious: No
  Sender: FDA-Public Use
  Company Number: 2009BI022747

PATIENT
  Sex: Female

DRUGS (2)
  1. TYSABRI [Suspect]
     Indication: MULTIPLE SCLEROSIS
     Route: 042
     Dates: start: 20090716, end: 20100624
  2. ALLEGRA [Concomitant]

REACTIONS (10)
  - ABDOMINAL PAIN UPPER [None]
  - BLADDER PROLAPSE [None]
  - CYST [None]
  - DIARRHOEA [None]
  - DRUG INEFFECTIVE [None]
  - EYE PAIN [None]
  - HEADACHE [None]
  - HEART RATE IRREGULAR [None]
  - HYPERSENSITIVITY [None]
  - STAPHYLOCOCCAL SKIN INFECTION [None]
